FAERS Safety Report 16038115 (Version 7)
Quarter: 2021Q2

REPORT INFORMATION
  Report Type: Report from Study
  Country: AU (occurrence: AU)
  Receive Date: 20190305
  Receipt Date: 20210625
  Transmission Date: 20210716
  Serious: Yes (Other)
  Sender: FDA-Public Use
  Company Number: AU-BRISTOL-MYERS SQUIBB COMPANY-BMS-2019-020416

PATIENT
  Age: 14 Year
  Sex: Male
  Weight: 48.3 kg

DRUGS (5)
  1. APIXABAN [Suspect]
     Active Substance: APIXABAN
     Indication: HYPOPLASTIC LEFT HEART SYNDROME
     Dosage: 10 MILLIGRAM, QD
     Route: 048
     Dates: start: 20180406, end: 20190221
  2. LISINOPRIL. [Concomitant]
     Active Substance: LISINOPRIL
     Indication: PRODUCT USED FOR UNKNOWN INDICATION
     Dosage: UNK
     Route: 065
     Dates: start: 20100818
  3. ACETYLSALICYLIC ACID [Concomitant]
     Active Substance: ASPIRIN
     Indication: ANTICOAGULANT THERAPY
     Dosage: 300 MILLIGRAM
     Route: 065
     Dates: start: 20190212
  4. VALERIAN EXTRACT [Concomitant]
     Active Substance: VALERIAN EXTRACT
     Indication: PRODUCT USED FOR UNKNOWN INDICATION
     Dosage: UNK
     Route: 065
     Dates: start: 20180716
  5. ACETYLSALICYLIC ACID [Concomitant]
     Active Substance: ASPIRIN
     Dosage: 100 MILLIGRAM
     Route: 065
     Dates: start: 20190213

REACTIONS (1)
  - Pulmonary arterial pressure increased [Recovered/Resolved]

NARRATIVE: CASE EVENT DATE: 20190207
